FAERS Safety Report 7797790-7 (Version None)
Quarter: 2011Q4

REPORT INFORMATION
  Report Type: 
  Country: None (occurrence: None)
  Receive Date: 20111005
  Receipt Date: 20110926
  Transmission Date: 20120403
  Serious: Yes (Other)
  Sender: FDA-Public Use
  Company Number: IT-JNJFOC-20110911139

PATIENT
  Age: 50 Year
  Sex: Female

DRUGS (5)
  1. PANTOPRAZOLE SODIUM [Concomitant]
     Route: 065
  2. CALCIUM CARBONATE W/COLECALCIFEROL [Concomitant]
     Route: 065
  3. REMICADE [Suspect]
     Indication: SPONDYLITIS
     Route: 042
     Dates: start: 20110723, end: 20110829
  4. MEDROL [Concomitant]
     Route: 065
  5. LASIX [Concomitant]
     Route: 065

REACTIONS (4)
  - DISORIENTATION [None]
  - INFUSION RELATED REACTION [None]
  - RESPIRATORY RATE DECREASED [None]
  - HYPERHIDROSIS [None]
